FAERS Safety Report 5367086-1 (Version None)
Quarter: 2007Q2

REPORT INFORMATION
  Report Type: 
  Country: None (occurrence: None)
  Receive Date: 20070622
  Receipt Date: 20070614
  Transmission Date: 20071010
  Serious: Yes (Other)
  Sender: FDA-Public Use
  Company Number: US-SANOFI-SYNTHELABO-A03200703789

PATIENT
  Sex: Female

DRUGS (2)
  1. AMBIEN [Suspect]
     Indication: INSOMNIA
     Dosage: UNK
     Route: 048
     Dates: start: 20070301, end: 20070610
  2. EFFEXOR [Concomitant]
     Dosage: UNK
     Route: 048
     Dates: start: 20070501

REACTIONS (3)
  - AMNESIA [None]
  - SELF MUTILATION [None]
  - SLEEP WALKING [None]
